FAERS Safety Report 8799339 (Version 1)
Quarter: 2012Q4

REPORT INFORMATION
  Report Type: 
  Country: US (occurrence: US)
  Receive Date: 20120920
  Receipt Date: 20120920
  Transmission Date: 20130627
  Serious: Yes (Death, Other)
  Sender: FDA-Public Use
  Company Number: US-BAXTER-2012BAX016966

PATIENT
  Sex: Female

DRUGS (1)
  1. DIANEAL LOW CALCIUM [Suspect]
     Indication: PERITONEAL DIALYSIS
     Route: 033
     Dates: start: 20101102, end: 20120908

REACTIONS (9)
  - Sepsis [Fatal]
  - Cardiac failure [Fatal]
  - Atrial fibrillation [Recovering/Resolving]
  - Cardiac arrest [Recovering/Resolving]
  - Haemorrhage [Unknown]
  - Gastric disorder [Unknown]
  - Gastrointestinal perforation [Unknown]
  - Gastrointestinal necrosis [Unknown]
  - Peritonitis [Unknown]
